FAERS Safety Report 4627848-2 (Version None)
Quarter: 2005Q2

REPORT INFORMATION
  Report Type: 
  Country: None (occurrence: None)
  Receive Date: 20050401
  Receipt Date: 20050321
  Transmission Date: 20051028
  Serious: No
  Sender: FDA-Public Use
  Company Number: 2005UW04611

PATIENT
  Age: 3 Month
  Sex: Female
  Weight: 6 kg

DRUGS (5)
  1. LOSEC [Suspect]
     Indication: GASTROOESOPHAGEAL REFLUX DISEASE
     Dosage: 6 MG DAILY PO
     Route: 048
  2. LOSEC [Suspect]
     Indication: GASTROOESOPHAGEAL REFLUX DISEASE
     Dosage: 6 MG BID ORAL
     Route: 048
     Dates: end: 20050322
  3. LOSEC [Suspect]
     Indication: GASTROOESOPHAGEAL REFLUX DISEASE
     Dosage: 9 MG DAILY PO
     Route: 048
     Dates: start: 20050322
  4. RANITIDINE [Concomitant]
  5. DOMPERIDONE [Concomitant]

REACTIONS (4)
  - DIET REFUSAL [None]
  - GASTROOESOPHAGEAL REFLUX DISEASE [None]
  - HYPOTONIA [None]
  - VOMITING [None]
